FAERS Safety Report 8109088-8 (Version None)
Quarter: 2012Q1

REPORT INFORMATION
  Report Type: 
  Country: None (occurrence: None)
  Receive Date: 20120202
  Receipt Date: 20120104
  Transmission Date: 20120608
  Serious: No
  Sender: FDA-Public Use
  Company Number: US-AMGEN-USASP2012000477

PATIENT
  Age: 57 Year
  Sex: Male

DRUGS (1)
  1. ENBREL [Suspect]
     Indication: ANKYLOSING SPONDYLITIS
     Dosage: 50 MG, QWK
     Dates: start: 20041220

REACTIONS (6)
  - INCORRECT STORAGE OF DRUG [None]
  - INJECTION SITE HAEMATOMA [None]
  - PYREXIA [None]
  - MYALGIA [None]
  - CHILLS [None]
  - BRONCHITIS [None]
